FAERS Safety Report 15993185 (Version 15)
Quarter: 2020Q1

REPORT INFORMATION
  Report Type: Report from Study
  Country: DE (occurrence: DE)
  Receive Date: 20190222
  Receipt Date: 20200319
  Transmission Date: 20200409
  Serious: Yes (Hospitalization, Other)
  Sender: FDA-Public Use
  Company Number: DE-BRISTOL-MYERS SQUIBB COMPANY-BMS-2019-016690

PATIENT
  Sex: Male
  Weight: 87 kg

DRUGS (17)
  1. NIVOLUMAB [Suspect]
     Active Substance: NIVOLUMAB
     Indication: PRODUCT USED FOR UNKNOWN INDICATION
     Dosage: 1 DOSAGE FORM, Q2WK
     Route: 065
     Dates: start: 20190903, end: 20190903
  2. NIVOLUMAB [Suspect]
     Active Substance: NIVOLUMAB
     Indication: PRODUCT USED FOR UNKNOWN INDICATION
     Dosage: UNK, Q2WK
     Route: 065
     Dates: start: 20190604, end: 20190604
  3. NIVOLUMAB [Suspect]
     Active Substance: NIVOLUMAB
     Indication: PRODUCT USED FOR UNKNOWN INDICATION
     Dosage: 254.13 ABSENT, Q2WK
     Route: 065
     Dates: start: 20190709, end: 20190917
  4. NIVOLUMAB [Suspect]
     Active Substance: NIVOLUMAB
     Indication: PRODUCT USED FOR UNKNOWN INDICATION
     Dosage: 259.56 ABSENT, Q2WK
     Route: 065
     Dates: start: 20190806, end: 20190806
  5. NIVOLUMAB [Suspect]
     Active Substance: NIVOLUMAB
     Indication: PRODUCT USED FOR UNKNOWN INDICATION
     Dosage: 267.81 UNK, Q2WK
     Route: 065
     Dates: start: 20190820, end: 20190820
  6. NIVOLUMAB [Suspect]
     Active Substance: NIVOLUMAB
     Indication: PRODUCT USED FOR UNKNOWN INDICATION
     Dosage: 1 DOSAGE FORM, Q2WK
     Route: 065
     Dates: start: 20191001, end: 20191001
  7. NIVOLUMAB [Suspect]
     Active Substance: NIVOLUMAB
     Indication: PRODUCT USED FOR UNKNOWN INDICATION
     Dosage: UNK, Q2WK
     Route: 065
     Dates: start: 20190509, end: 20190509
  8. CLEXANE [Concomitant]
     Active Substance: ENOXAPARIN SODIUM
     Indication: PERIPHERAL VASCULAR DISORDER
     Dosage: 0.8 ML, QD
     Route: 058
     Dates: start: 20180926
  9. NIVOLUMAB [Suspect]
     Active Substance: NIVOLUMAB
     Indication: PRODUCT USED FOR UNKNOWN INDICATION
     Dosage: UNK, Q2WK
     Route: 065
     Dates: start: 20190522, end: 20190522
  10. NIVOLUMAB [Suspect]
     Active Substance: NIVOLUMAB
     Indication: PRODUCT USED FOR UNKNOWN INDICATION
     Dosage: UNK, 262.2 (UNSPECIFIED UNITS), ONCE IN 2 WEEKS
     Route: 065
     Dates: start: 20190723, end: 20190723
  11. NIVOLUMAB [Suspect]
     Active Substance: NIVOLUMAB
     Indication: PRODUCT USED FOR UNKNOWN INDICATION
     Dosage: 253.74 ABSENT, Q2WK
     Route: 065
     Dates: start: 20191029, end: 20191029
  12. NIVOLUMAB [Suspect]
     Active Substance: NIVOLUMAB
     Indication: LUNG NEOPLASM MALIGNANT
     Dosage: UNK, Q2WK
     Route: 065
     Dates: start: 20181119
  13. NIVOLUMAB [Suspect]
     Active Substance: NIVOLUMAB
     Indication: MALIGNANT MELANOMA
     Dosage: UNK, Q2WK
     Route: 065
     Dates: start: 20190327, end: 20190327
  14. NIVOLUMAB [Suspect]
     Active Substance: NIVOLUMAB
     Indication: PRODUCT USED FOR UNKNOWN INDICATION
     Dosage: 258.96 ABSENT, Q2WK
     Route: 065
     Dates: start: 20191015, end: 20191015
  15. NIVOLUMAB [Suspect]
     Active Substance: NIVOLUMAB
     Indication: PRODUCT USED FOR UNKNOWN INDICATION
     Dosage: UNK, Q2WK
     Route: 065
     Dates: start: 20190410, end: 20190410
  16. NIVOLUMAB [Suspect]
     Active Substance: NIVOLUMAB
     Indication: PRODUCT USED FOR UNKNOWN INDICATION
     Dosage: 259.94 ABSENT, Q2WK
     Route: 065
     Dates: start: 20190625, end: 20190625
  17. NIVOLUMAB [Suspect]
     Active Substance: NIVOLUMAB
     Indication: PRODUCT USED FOR UNKNOWN INDICATION
     Dosage: 255.31 ABSENT, Q2WK
     Route: 065
     Dates: start: 20191112, end: 20191112

REACTIONS (2)
  - Herpes zoster meningoradiculitis [Recovered/Resolved]
  - Prescribed overdose [Unknown]

NARRATIVE: CASE EVENT DATE: 20190213
